FAERS Safety Report 7166371-0 (Version None)
Quarter: 2010Q4

REPORT INFORMATION
  Report Type: 
  Country: None (occurrence: None)
  Receive Date: 20101216
  Receipt Date: 20101020
  Transmission Date: 20110411
  Serious: No
  Sender: FDA-Public Use
  Company Number: US-ABBOTT-10P-163-0680399-00

PATIENT
  Age: 35 Year
  Sex: Male
  Weight: 81.72 kg

DRUGS (6)
  1. TRILIPIX [Suspect]
     Indication: BLOOD TRIGLYCERIDES INCREASED
     Dosage: LOT NUMBER AND EXPIRATION WERE UNAVAILABLE (PATIENT THREW OUT MEDICATION).
     Route: 048
     Dates: start: 20100501
  2. TRILIPIX [Suspect]
     Indication: HIGH DENSITY LIPOPROTEIN DECREASED
  3. ADVAIR [Concomitant]
     Indication: DYSPNOEA
  4. VENTOLIN [Concomitant]
     Indication: PRODUCT USED FOR UNKNOWN INDICATION
  5. UNKNOWN COUGH MEDICATION [Concomitant]
     Indication: COUGH
     Dosage: YELLOW PILL
  6. UNKNOWN ALLERGY MEDICATION [Concomitant]
     Indication: PRODUCT USED FOR UNKNOWN INDICATION
     Dosage: TRYING FOR 20 DAYS TO SEE IF HELPS.

REACTIONS (5)
  - BRONCHITIS [None]
  - CHEST DISCOMFORT [None]
  - COUGH [None]
  - DYSPNOEA [None]
  - WHEEZING [None]
